FAERS Safety Report 12762547 (Version 3)
Quarter: 2016Q4

REPORT INFORMATION
  Report Type: Spontaneous
  Country: US (occurrence: US)
  Receive Date: 20160920
  Receipt Date: 20161216
  Transmission Date: 20170207
  Serious: Yes (Hospitalization, Other)
  Sender: FDA-Public Use
  Company Number: US-PFIZER INC-2016432433

PATIENT
  Age: 54 Year
  Sex: Male
  Weight: 83.91 kg

DRUGS (18)
  1. LYRICA [Suspect]
     Active Substance: PREGABALIN
     Indication: PHANTOM PAIN
     Dosage: 50 MG, 2X/DAY
     Route: 048
     Dates: start: 2016
  2. PAROXETINE. [Concomitant]
     Active Substance: PAROXETINE
     Indication: SOCIAL ANXIETY DISORDER
     Dosage: 40 MG, 1X/DAY
  3. AMLODIPINE BESILATE [Concomitant]
     Active Substance: AMLODIPINE BESYLATE
     Indication: BLOOD PRESSURE ABNORMAL
     Dosage: 10 MG, 1X/DAY
  4. OMEPRAZOLE. [Concomitant]
     Active Substance: OMEPRAZOLE
     Indication: GASTROOESOPHAGEAL REFLUX DISEASE
     Dosage: 40 MG, 1X/DAY
  5. THIAMINE. [Concomitant]
     Active Substance: THIAMINE
     Indication: PROMOTION OF WOUND HEALING
     Dosage: 250 MG, 1X/DAY
  6. CLONIDINE. [Concomitant]
     Active Substance: CLONIDINE
     Indication: HYPERTENSION
     Dosage: 0.1 MG, 2X/DAY
  7. MELOXICAM. [Concomitant]
     Active Substance: MELOXICAM
     Indication: ARTHRITIS
     Dosage: 15 MG, 1X/DAY
  8. NORCO [Concomitant]
     Active Substance: ACETAMINOPHEN\HYDROCODONE BITARTRATE
     Dosage: 7.5 MG, EVERY 4 HRS
  9. MELOXICAM. [Concomitant]
     Active Substance: MELOXICAM
     Indication: INFLAMMATION
  10. LISINOPRIL. [Concomitant]
     Active Substance: LISINOPRIL
     Indication: HYPERTENSION
     Dosage: 20 MG, DAILY
  11. VITAMIN C [Concomitant]
     Active Substance: ASCORBIC ACID
     Indication: PROMOTION OF WOUND HEALING
     Dosage: 500 MG, 2X/DAY
  12. ZINC [Concomitant]
     Active Substance: ZINC\ZINC CHLORIDE
     Indication: PROMOTION OF WOUND HEALING
     Dosage: 50 MG, 1X/DAY
  13. CLONAZEPAM. [Concomitant]
     Active Substance: CLONAZEPAM
     Indication: ANXIETY
     Dosage: 0.5 MG, AS NEEDED (TWO TIMES DAY)
  14. L-ARGININE [Concomitant]
     Active Substance: ARGININE
     Indication: PROMOTION OF WOUND HEALING
     Dosage: 500 MG, 1X/DAY
  15. L-GLUTAMINE [Concomitant]
     Indication: PROMOTION OF WOUND HEALING
     Dosage: 500 MG, 1X/DAY
  16. PAROXETINE. [Concomitant]
     Active Substance: PAROXETINE
     Indication: BIPOLAR DISORDER
     Dosage: 20 MG, 1X/DAY
  17. PAROXETINE. [Concomitant]
     Active Substance: PAROXETINE
     Indication: OBSESSIVE-COMPULSIVE DISORDER
  18. FOLIC ACID. [Concomitant]
     Active Substance: FOLIC ACID
     Indication: PROMOTION OF WOUND HEALING
     Dosage: 400 MG, 1X/DAY

REACTIONS (6)
  - Osteomyelitis [Recovering/Resolving]
  - Product use issue [Unknown]
  - Drug abuser [Unknown]
  - Abasia [Unknown]
  - Weight increased [Unknown]
  - Localised infection [Unknown]

NARRATIVE: CASE EVENT DATE: 2016
